FAERS Safety Report 23400926 (Version 1)
Quarter: 2024Q1

REPORT INFORMATION
  Report Type: Spontaneous
  Country: GB (occurrence: GB)
  Receive Date: 20240115
  Receipt Date: 20240115
  Transmission Date: 20240409
  Serious: Yes (Hospitalization, Other)
  Sender: FDA-Public Use
  Company Number: GB-BAXTER-2024BAX010348

PATIENT
  Age: 70 Year
  Sex: Male

DRUGS (1)
  1. CALCIUM CL\DEXTROSE\MAGNESIUM CL\SODIUM BICAR\SODIUM CL\SODIUM LACT [Suspect]
     Active Substance: CALCIUM CHLORIDE\DEXTROSE MONOHYDRATE\MAGNESIUM CHLORIDE\SODIUM BICARBONATE\SODIUM CHLORIDE\SODIUM L
     Dosage: 3 UNITS, 6 TIMES PER WEEK
     Route: 033

REACTIONS (2)
  - Pulmonary oedema [Unknown]
  - Peritonitis [Unknown]

NARRATIVE: CASE EVENT DATE: 20231227
